FAERS Safety Report 18147216 (Version 1)
Quarter: 2020Q3

REPORT INFORMATION
  Report Type: Spontaneous
  Country: US (occurrence: US)
  Receive Date: 20200814
  Receipt Date: 20200814
  Transmission Date: 20201103
  Serious: Yes (Other)
  Sender: FDA-Public Use
  Company Number: US-AUROBINDO-AUR-APL-2020-038494

PATIENT
  Age: 48 Year
  Sex: Female

DRUGS (6)
  1. AMIODARONE HYDROCHLORIDE. [Suspect]
     Active Substance: AMIODARONE HYDROCHLORIDE
     Indication: VENTRICULAR TACHYCARDIA
  2. HYDROCORTISONE. [Suspect]
     Active Substance: HYDROCORTISONE
     Indication: THYROTOXIC CRISIS
     Dosage: 100 MILLIGRAM, 3 TIMES A DAY
     Route: 042
  3. METHIMAZOLE. [Suspect]
     Active Substance: METHIMAZOLE
     Indication: THYROTOXIC CRISIS
     Dosage: 60 MILLIGRAM, TWO TIMES A DAY
     Route: 065
  4. LUGOLS IODINE [Suspect]
     Active Substance: IODINE\POTASSIUM IODIDE
     Indication: THYROTOXIC CRISIS
     Dosage: 10 GTT DROPS, 3 TIMES A DAY
     Route: 065
  5. AMIODARONE HYDROCHLORIDE. [Suspect]
     Active Substance: AMIODARONE HYDROCHLORIDE
     Indication: THYROTOXIC CRISIS
     Dosage: UNK
     Route: 042
  6. HYDROCORTISONE. [Suspect]
     Active Substance: HYDROCORTISONE
     Indication: VENTRICULAR TACHYCARDIA

REACTIONS (1)
  - Drug ineffective [Unknown]
